FAERS Safety Report 7724649-3 (Version None)
Quarter: 2011Q3

REPORT INFORMATION
  Report Type: 
  Country: None (occurrence: None)
  Receive Date: 20110829
  Receipt Date: 20110819
  Transmission Date: 20111222
  Serious: Yes (Hospitalization)
  Sender: FDA-Public Use
  Company Number: LTI2011A00246

PATIENT
  Age: 69 Year
  Sex: Male

DRUGS (9)
  1. ATACAND [Concomitant]
  2. PERMIXON (SERENOA REPENS) [Concomitant]
  3. QUESTRAN [Concomitant]
  4. GLICLAZIDE (GLICLAZIDE) [Concomitant]
  5. ASPIRIN [Concomitant]
  6. OMEPRAZOLE [Concomitant]
  7. CELIPROLOL (CELIPROLOL) [Concomitant]
  8. LEVOTHYROXINE SODIUM [Concomitant]
  9. ACTOS [Suspect]
     Indication: TYPE 2 DIABETES MELLITUS
     Dosage: 15 MG (15 MG,1 IN 1 D) ORAL
     Route: 048
     Dates: start: 20070925, end: 20100630

REACTIONS (1)
  - BLADDER CANCER [None]
